FAERS Safety Report 7714616-8 (Version None)
Quarter: 2011Q3

REPORT INFORMATION
  Report Type: 
  Country: None (occurrence: None)
  Receive Date: 20110829
  Receipt Date: 20110823
  Transmission Date: 20111222
  Serious: No
  Sender: FDA-Public Use
  Company Number: US-PFIZER INC-2011154005

PATIENT
  Sex: Male
  Weight: 122 kg

DRUGS (16)
  1. CENTRUM [Concomitant]
     Dosage: UNK
  2. PROCHLORPERAZINE [Concomitant]
     Dosage: UNK
  3. ACETAMINOPHEN [Concomitant]
     Dosage: UNK
  4. DIOVAN [Concomitant]
     Dosage: UNK
  5. NORVASC [Concomitant]
     Dosage: UNK
  6. KEFLEX [Concomitant]
     Dosage: UNK
  7. PAROXETINE [Concomitant]
     Dosage: UNK
  8. PRAVASTATIN [Concomitant]
     Dosage: UNK
  9. CHONDROITIN/GLUCOSAMINE [Concomitant]
     Dosage: UNK
  10. LEVOXYL [Concomitant]
     Dosage: UNK
  11. MAGIC MOUTHWASH [Concomitant]
     Dosage: UNK
  12. SUTENT [Suspect]
     Indication: RENAL CELL CARCINOMA
     Dosage: 50 MG, 1X/DAY
     Route: 048
     Dates: start: 20110417
  13. INOSITOL [Concomitant]
     Dosage: UNK
  14. VITAMIN B-12 [Concomitant]
     Dosage: UNK
  15. GLYBURIDE [Concomitant]
     Dosage: UNK
  16. METFORMIN [Concomitant]
     Dosage: UNK

REACTIONS (8)
  - DECREASED APPETITE [None]
  - MOUTH ULCERATION [None]
  - EPISTAXIS [None]
  - ARTHRALGIA [None]
  - PAIN IN EXTREMITY [None]
  - DYSGEUSIA [None]
  - DYSPNOEA [None]
  - LACRIMATION INCREASED [None]
